FAERS Safety Report 13257964 (Version 1)
Quarter: 2017Q1

REPORT INFORMATION
  Report Type: Spontaneous
  Country: US (occurrence: US)
  Receive Date: 20170221
  Receipt Date: 20170221
  Transmission Date: 20170428
  Serious: Yes (Other)
  Sender: FDA-Public Use
  Company Number: US-TEVA-740487USA

PATIENT
  Age: 46 Year
  Sex: Male

DRUGS (8)
  1. VITAMIN C [Concomitant]
     Active Substance: ASCORBIC ACID
  2. CREATININE [Concomitant]
     Active Substance: CREATININE
  3. COQ10 [Concomitant]
     Active Substance: UBIDECARENONE
  4. COPAXONE [Suspect]
     Active Substance: GLATIRAMER ACETATE
     Indication: MULTIPLE SCLEROSIS
     Route: 058
     Dates: start: 20161004
  5. POTASSIUM [Concomitant]
     Active Substance: POTASSIUM
  6. VITAMIN D3 [Concomitant]
     Active Substance: CHOLECALCIFEROL
  7. GINSENG [Concomitant]
     Active Substance: ASIAN GINSENG
  8. SELENIUM [Concomitant]
     Active Substance: SELENIUM

REACTIONS (4)
  - Fatigue [Unknown]
  - Diplegia [Unknown]
  - Injection site mass [Unknown]
  - Wound [Unknown]

NARRATIVE: CASE EVENT DATE: 201701
